FAERS Safety Report 7086857-7 (Version None)
Quarter: 2010Q4

REPORT INFORMATION
  Report Type: 
  Country: None (occurrence: None)
  Receive Date: 20101105
  Receipt Date: 20101027
  Transmission Date: 20110411
  Serious: Yes (Hospitalization)
  Sender: FDA-Public Use
  Company Number: US-AMGEN-USASP2010002175

PATIENT

DRUGS (2)
  1. EPOGEN [Suspect]
     Dosage: 10000 UNIT, QWK
     Dates: start: 20100921
  2. ANTIHYPERTENSIVES [Concomitant]

REACTIONS (4)
  - BLOOD CREATININE INCREASED [None]
  - BLOOD PRESSURE ABNORMAL [None]
  - BLOOD UREA INCREASED [None]
  - INSERTION OF AMBULATORY PERITONEAL CATHETER [None]
